FAERS Safety Report 22209581 (Version 1)
Quarter: 2023Q2

REPORT INFORMATION
  Report Type: Spontaneous
  Country: DE (occurrence: DE)
  Receive Date: 20230414
  Receipt Date: 20230414
  Transmission Date: 20230722
  Serious: Yes (Other)
  Sender: FDA-Public Use
  Company Number: DE-002147023-NVSC2023DE084355

PATIENT
  Sex: Female

DRUGS (1)
  1. KESIMPTA [Suspect]
     Active Substance: OFATUMUMAB
     Indication: Product used for unknown indication
     Dosage: UNK, QMO (EVERY 4 WEEKS)
     Route: 065
     Dates: start: 202205

REACTIONS (3)
  - B-cell aplasia [Unknown]
  - Rash [Unknown]
  - Throat irritation [Unknown]
